FAERS Safety Report 21438904 (Version 2)
Quarter: 2022Q4

REPORT INFORMATION
  Report Type: Report from Study
  Country: FR (occurrence: FR)
  Receive Date: 20221011
  Receipt Date: 20221219
  Transmission Date: 20230112
  Serious: Yes (Death)
  Sender: FDA-Public Use
  Company Number: FR-NOVARTISPH-NVSC2022FR227658

PATIENT
  Sex: Male
  Weight: 70 kg

DRUGS (1)
  1. PLUVICTO [Suspect]
     Active Substance: LUTETIUM LU-177 VIPIVOTIDE TETRAXETAN
     Indication: Prostate cancer
     Dosage: 6898 MBQ, ONCE (CYCLE 1)
     Route: 065
     Dates: start: 20220825, end: 20220825

REACTIONS (3)
  - Acute respiratory failure [Fatal]
  - Bronchial disorder [Fatal]
  - Neoplasm [Fatal]
